FAERS Safety Report 4491635-9 (Version None)
Quarter: 2005Q1

REPORT INFORMATION
  Report Type: 
  Country: None (occurrence: None)
  Receive Date: 20041101
  Receipt Date: 20041019
  Transmission Date: 20050727
  Serious: Yes (Disabling)
  Sender: FDA-Public Use
  Company Number: 2004AP05087

PATIENT
  Age: 83 Year
  Sex: Male

DRUGS (7)
  1. ANAPEINE [Suspect]
     Indication: EPIDURAL ANAESTHESIA
  2. ANAPEINE [Suspect]
     Indication: POSTOPERATIVE ANALGESIA
  3. ANAPEINE [Suspect]
     Indication: EPIDURAL ANAESTHESIA
     Dosage: 6 ML/HR ED
  4. ANAPEINE [Suspect]
     Indication: POSTOPERATIVE ANALGESIA
     Dosage: 6 ML/HR ED
  5. PROPOFOL [Concomitant]
  6. NITROUS OXIDE W/ OXYGEN [Concomitant]
  7. SEVOFLURANE [Concomitant]

REACTIONS (3)
  - ANAESTHETIC COMPLICATION [None]
  - BLOOD DISORDER [None]
  - SPINAL CORD INFARCTION [None]
